FAERS Safety Report 20435771 (Version 4)
Quarter: 2022Q2

REPORT INFORMATION
  Report Type: Report from Study
  Country: US (occurrence: US)
  Receive Date: 20220207
  Receipt Date: 20220601
  Transmission Date: 20220721
  Serious: No
  Sender: FDA-Public Use
  Company Number: US-BEH-2022141872

PATIENT
  Age: 73 Year
  Sex: Female

DRUGS (6)
  1. HIZENTRA [Suspect]
     Active Substance: HUMAN IMMUNOGLOBULIN G
     Indication: Primary immunodeficiency syndrome
     Dosage: 10 GRAM, QW
     Route: 058
     Dates: start: 20211207
  2. HIZENTRA [Suspect]
     Active Substance: HUMAN IMMUNOGLOBULIN G
     Dosage: UNK
     Route: 058
     Dates: start: 20220524
  3. LIDOCAINE [Concomitant]
     Active Substance: LIDOCAINE
     Indication: Premedication
     Dosage: UNK
     Route: 061
     Dates: start: 20211207
  4. TYLENOL [Concomitant]
     Active Substance: ACETAMINOPHEN
     Indication: Premedication
     Dosage: 2 DOSAGE FORM
     Dates: start: 20211207
  5. TYLENOL [Concomitant]
     Active Substance: ACETAMINOPHEN
     Dosage: 1 DOSAGE FORM, QD
     Dates: start: 20220524
  6. BENADRYL [Concomitant]
     Active Substance: DIPHENHYDRAMINE HYDROCHLORIDE
     Indication: Premedication
     Dosage: 1 DOSAGE FORM
     Dates: start: 20211207

REACTIONS (16)
  - Infusion site extravasation [Unknown]
  - Headache [Recovered/Resolved]
  - Fatigue [Recovered/Resolved]
  - Fatigue [Unknown]
  - Fatigue [Recovered/Resolved]
  - Infusion site extravasation [Unknown]
  - Infusion site bruising [Unknown]
  - Infusion site discolouration [Recovering/Resolving]
  - Alopecia [Unknown]
  - Infusion site induration [Unknown]
  - Injection site mass [Unknown]
  - Headache [Recovered/Resolved]
  - Depression [Unknown]
  - Infusion site pain [Unknown]
  - Infusion site pain [Unknown]
  - Injection site mass [Not Recovered/Not Resolved]

NARRATIVE: CASE EVENT DATE: 20211201
